FAERS Safety Report 5121986-6 (Version None)
Quarter: 2006Q4

REPORT INFORMATION
  Report Type: 
  Country: None (occurrence: None)
  Receive Date: 20061006
  Receipt Date: 20060925
  Transmission Date: 20070319
  Serious: Yes (Other)
  Sender: FDA-Public Use
  Company Number: PHBS2006IT15041

PATIENT
  Age: 69 Year
  Sex: Female

DRUGS (7)
  1. ZOMETA [Suspect]
     Indication: METASTASES TO BONE
     Dosage: 4 MG, QMO
     Route: 042
     Dates: start: 20050510, end: 20060426
  2. AREDIA [Suspect]
     Indication: METASTASES TO BONE
     Dosage: 60 MG, QMO
     Route: 042
     Dates: start: 20060524, end: 20060828
  3. GLEEVEC [Concomitant]
     Indication: GASTROINTESTINAL STROMAL TUMOUR
     Dosage: 400 MG/D
     Route: 048
     Dates: start: 20050510, end: 20060905
  4. LUCEN [Concomitant]
     Dosage: 20 MG/D
     Route: 048
     Dates: start: 20060501, end: 20060905
  5. CACIT VITAMINE D3 [Concomitant]
     Dosage: 1000 MG/D
     Route: 048
     Dates: start: 20050501, end: 20060905
  6. GLIBOMET [Concomitant]
     Dosage: 1000 MG/D
     Route: 048
     Dates: start: 20050501, end: 20060905
  7. DURAGESIC-100 [Concomitant]
     Dosage: 20 UG/D
     Route: 062
     Dates: start: 20050501, end: 20060905

REACTIONS (1)
  - PAIN IN JAW [None]
